FAERS Safety Report 9053689 (Version 1)
Quarter: 2013Q1

REPORT INFORMATION
  Report Type: Spontaneous
  Country: US (occurrence: None)
  Receive Date: 20130117
  Receipt Date: 20130117
  Transmission Date: 20140127
  Serious: Yes (Death, Hospitalization)
  Sender: FDA-Public Use
  Company Number: 2012-1350

PATIENT
  Age: 86 Year
  Sex: Male

DRUGS (9)
  1. KYPROLIS [Suspect]
     Indication: PLASMA CELL MYELOMA
     Dosage: (36 MG, 2 IN 1 WK)
     Route: 042
     Dates: start: 20120917
  2. ASPIRIN (ACETYLSALICYLIC ACID) (ACETYLSALICYLIC ACID) [Concomitant]
  3. LIPITOR (ATORVASTATIN CALCIUM) (ATORVASTATIN CALCIUM) [Concomitant]
  4. CARDIZEM (DILTIAZEM) (DILTIAZEM) [Concomitant]
  5. COREG (CARVEDILOL) (CARVEDILOL) [Concomitant]
  6. LASIX (FUROSEMIDE) (FUROSEMIDE) [Concomitant]
  7. POTASSIUM (POTASSIUM) (POTASSIUM) [Concomitant]
  8. PROBIOTIC (BIFIDOBACTERIUM LACTIS) (BIFIDOBACTERIUM LACTIS) [Concomitant]
  9. COMPAZINE (PROCHLORPERAZINE EDISYLATE) (PROCHLORPERAZINE EDISYLATE) [Concomitant]

REACTIONS (6)
  - Cardiac failure congestive [None]
  - Renal failure acute [None]
  - Pneumonia [None]
  - Septic shock [None]
  - Respiratory failure [None]
  - Organ failure [None]
